FAERS Safety Report 13423206 (Version 1)
Quarter: 2017Q2

REPORT INFORMATION
  Report Type: Report from Study
  Country: US (occurrence: US)
  Receive Date: 20170410
  Receipt Date: 20170410
  Transmission Date: 20170830
  Serious: No
  Sender: FDA-Public Use
  Company Number: US-009507513-1703USA012081

PATIENT
  Sex: Female

DRUGS (1)
  1. NEXPLANON [Suspect]
     Active Substance: ETONOGESTREL
     Route: 059

REACTIONS (7)
  - Implant site bruising [Unknown]
  - Vaginal discharge [Unknown]
  - Migraine [Unknown]
  - Hypomenorrhoea [Unknown]
  - Implant site pain [Unknown]
  - Implant site haemorrhage [Unknown]
  - Amenorrhoea [Unknown]
